FAERS Safety Report 18693064 (Version 8)
Quarter: 2021Q2

REPORT INFORMATION
  Report Type: Report from Study
  Country: FR (occurrence: FR)
  Receive Date: 20210104
  Receipt Date: 20210623
  Transmission Date: 20210717
  Serious: Yes (Hospitalization)
  Sender: FDA-Public Use
  Company Number: FR-ROCHE-2742560

PATIENT
  Age: 78 Year
  Sex: Female
  Weight: 66 kg

DRUGS (2)
  1. OBINUTUZUMAB. [Suspect]
     Active Substance: OBINUTUZUMAB
     Indication: FOLLICULAR LYMPHOMA
     Dosage: DATE OF MOST RECENT DOSE OF OBINUTUZUMAB ADMINISTERED PRIOR TO ONSET OF SAE: 17/DEC/2020?DATE OF MOS
     Route: 042
     Dates: start: 20201203, end: 20201230
  2. OBINUTUZUMAB. [Suspect]
     Active Substance: OBINUTUZUMAB
     Route: 042

REACTIONS (3)
  - COVID-19 pneumonia [Recovered/Resolved]
  - Necrotic lymphadenopathy [Recovered/Resolved]
  - Granulomatous lymphadenitis [Unknown]

NARRATIVE: CASE EVENT DATE: 20201230
